FAERS Safety Report 6042093-4 (Version None)
Quarter: 2009Q1

REPORT INFORMATION
  Report Type: 
  Country: None (occurrence: None)
  Receive Date: 20090116
  Receipt Date: 20090107
  Transmission Date: 20090719
  Serious: Yes (Other)
  Sender: FDA-Public Use
  Company Number: PHEH2009US00532

PATIENT
  Sex: Male

DRUGS (5)
  1. ZOMETA [Suspect]
     Indication: METASTASES TO BONE
     Dosage: 4 MG, QW3
     Route: 042
     Dates: start: 20030101, end: 20040901
  2. ZOMETA [Suspect]
     Indication: PROSTATE CANCER METASTATIC
  3. LUPRON [Concomitant]
     Indication: PROSTATE CANCER
  4. TAXOTERE [Concomitant]
     Indication: PROSTATE CANCER
  5. RADIATION THERAPY [Concomitant]
     Indication: METASTASES TO BONE
     Dosage: UNK

REACTIONS (3)
  - BONE DISORDER [None]
  - IMPAIRED HEALING [None]
  - MEDICAL DEVICE REMOVAL [None]
